FAERS Safety Report 15422378 (Version 1)
Quarter: 2018Q3

REPORT INFORMATION
  Report Type: Report from Study
  Country: US (occurrence: US)
  Receive Date: 20180925
  Receipt Date: 20180925
  Transmission Date: 20181010
  Serious: Yes (Hospitalization)
  Sender: FDA-Public Use
  Company Number: US-BEH-2018095000

PATIENT
  Age: 57 Year
  Sex: Male
  Weight: 66.67 kg

DRUGS (1)
  1. ZEMAIRA [Suspect]
     Active Substance: .ALPHA.1-PROTEINASE INHIBITOR HUMAN
     Indication: ALPHA-1 ANTI-TRYPSIN DEFICIENCY
     Dosage: UNK UNK, WEEKLY
     Route: 042

REACTIONS (4)
  - Pulmonary embolism [Unknown]
  - Pain in extremity [Unknown]
  - Renal pain [Unknown]
  - Thrombosis [Unknown]
